FAERS Safety Report 14524333 (Version 2)
Quarter: 2018Q1

REPORT INFORMATION
  Report Type: Spontaneous
  Country: US (occurrence: US)
  Receive Date: 20180213
  Receipt Date: 20180309
  Transmission Date: 20180509
  Serious: No
  Sender: FDA-Public Use
  Company Number: US-PFIZER INC-2018061680

PATIENT
  Age: 36 Year
  Sex: Female
  Weight: 81.65 kg

DRUGS (3)
  1. LYRICA [Suspect]
     Active Substance: PREGABALIN
     Indication: NEURALGIA
     Dosage: 375 MG, DAILY,(75MG 5XDAILY)
     Route: 048
     Dates: start: 2014
  2. LYRICA [Suspect]
     Active Substance: PREGABALIN
     Indication: BACK PAIN
     Dosage: 375 MG, DAILY (75 MG CAPSULES BY MOUTH, 3 IN THE MORNING AND 2 IN THE EVENING)
     Route: 048
     Dates: start: 2015, end: 201711
  3. LYRICA [Suspect]
     Active Substance: PREGABALIN
     Indication: NEURALGIA
     Dosage: TAKING 2 IN THE MORNING AND 1 IN THE EVEVNING
     Dates: start: 201711

REACTIONS (3)
  - Withdrawal syndrome [Unknown]
  - Intentional product misuse [Unknown]
  - Feeling abnormal [Not Recovered/Not Resolved]

NARRATIVE: CASE EVENT DATE: 2017
